FAERS Safety Report 24381338 (Version 1)
Quarter: 2024Q4

REPORT INFORMATION
  Report Type: Spontaneous
  Country: MT (occurrence: MT)
  Receive Date: 20241001
  Receipt Date: 20241001
  Transmission Date: 20250115
  Serious: Yes (Death)
  Sender: RANBAXY
  Company Number: MT-SUN PHARMACEUTICAL INDUSTRIES LTD-2024R1-470589

PATIENT
  Age: 56 Year
  Sex: Male

DRUGS (5)
  1. ZOLEDRONIC ACID [Suspect]
     Active Substance: ZOLEDRONIC ACID
     Indication: Hypercalcaemia of malignancy
     Dosage: 4 MILLIGRAM
     Route: 065
  2. ZOLEDRONIC ACID [Suspect]
     Active Substance: ZOLEDRONIC ACID
     Dosage: 4 MILLIGRAM
     Route: 042
     Dates: start: 20230909
  3. SODIUM CHLORIDE [Suspect]
     Active Substance: SODIUM CHLORIDE
     Indication: Hypercalcaemia of malignancy
     Dosage: 1 LITER, EVERY 8 HOURS
     Route: 042
  4. CISPLATIN [Concomitant]
     Active Substance: CISPLATIN
     Indication: Metastatic squamous cell carcinoma
     Dosage: UNK
     Route: 065
  5. CEMIPLIMAB [Concomitant]
     Active Substance: CEMIPLIMAB
     Indication: Metastatic squamous cell carcinoma
     Dosage: UNK
     Route: 065

REACTIONS (1)
  - Condition aggravated [Fatal]
